FAERS Safety Report 8957818 (Version 3)
Quarter: 2013Q1

REPORT INFORMATION
  Report Type: Report from Study
  Country: PL (occurrence: PL)
  Receive Date: 20121211
  Receipt Date: 20130123
  Transmission Date: 20140127
  Serious: Yes (Hospitalization)
  Sender: FDA-Public Use
  Company Number: PL-ROCHE-1165830

PATIENT
  Age: 60 Year
  Sex: Female
  Weight: 60 kg

DRUGS (9)
  1. TRASTUZUMAB [Suspect]
     Indication: BREAST CANCER METASTATIC
     Route: 065
     Dates: start: 20070321, end: 20110107
  2. TRASTUZUMAB [Suspect]
     Route: 065
     Dates: start: 20110218, end: 20120120
  3. CAPECITABINE [Suspect]
     Indication: BREAST CANCER METASTATIC
     Route: 065
     Dates: start: 201203, end: 201209
  4. TYVERB [Concomitant]
  5. ENARENAL [Concomitant]
     Route: 048
  6. PRINIVIL [Concomitant]
     Route: 048
  7. VASTAN [Concomitant]
     Indication: HYPERCHOLESTEROLAEMIA
     Route: 048
  8. AMLOPIN [Concomitant]
     Route: 048
  9. PREDUCTAL MR [Concomitant]
     Route: 048
     Dates: start: 201102

REACTIONS (4)
  - Bundle branch block left [Not Recovered/Not Resolved]
  - Disease progression [Not Recovered/Not Resolved]
  - Ejection fraction decreased [Not Recovered/Not Resolved]
  - Upper respiratory tract infection [Unknown]
